FAERS Safety Report 20172367 (Version 2)
Quarter: 2022Q1

REPORT INFORMATION
  Report Type: Spontaneous
  Country: CN (occurrence: CN)
  Receive Date: 20211210
  Receipt Date: 20220310
  Transmission Date: 20220423
  Serious: Yes (Hospitalization)
  Sender: FDA-Public Use
  Company Number: CN-BRISTOL-MYERS SQUIBB COMPANY-BMS-2021-129563

PATIENT

DRUGS (2)
  1. YERVOY [Suspect]
     Active Substance: IPILIMUMAB
     Indication: Oesophageal carcinoma
     Dosage: 50 MILLIGRAM
     Route: 041
     Dates: start: 20211122, end: 20211122
  2. SINTILIMAB [Concomitant]
     Active Substance: SINTILIMAB
     Indication: Oesophageal carcinoma
     Dosage: UNK
     Route: 065
     Dates: start: 20211122, end: 20211122

REACTIONS (3)
  - Hepatic function abnormal [Not Recovered/Not Resolved]
  - Jaundice [Not Recovered/Not Resolved]
  - Intentional product use issue [Unknown]
